FAERS Safety Report 20414227 (Version 3)
Quarter: 2022Q1

REPORT INFORMATION
  Report Type: Other
  Country: US (occurrence: None)
  Receive Date: 20220202
  Receipt Date: 20220310
  Transmission Date: 20220424
  Serious: No
  Sender: FDA-Public Use
  Company Number: US-ROCHE-3012730

PATIENT
  Age: 54 Year
  Sex: Male
  Weight: 79.450 kg

DRUGS (1)
  1. OCREVUS [Suspect]
     Active Substance: OCRELIZUMAB
     Indication: Multiple sclerosis
     Dosage: SUBSEQUENT DOSES ON 22/JAN/2020, 27/JAN/2020, 6/JULY/2020, 25/JAN/2021, 26/JUL/2021
     Route: 042
     Dates: start: 20210106

REACTIONS (1)
  - COVID-19 [Recovered/Resolved]

NARRATIVE: CASE EVENT DATE: 20220117
